FAERS Safety Report 15543828 (Version 4)
Quarter: 2019Q4

REPORT INFORMATION
  Report Type: Spontaneous
  Country: JP (occurrence: JP)
  Receive Date: 20181023
  Receipt Date: 20191002
  Transmission Date: 20200122
  Serious: Yes (Death, Hospitalization, Other)
  Sender: FDA-Public Use
  Company Number: JP-DSJP-DSJ-2018-145199

PATIENT

DRUGS (4)
  1. IRBETAN [Suspect]
     Active Substance: IRBESARTAN
     Indication: HYPERTENSION
     Dosage: 100 MG, QD
     Route: 048
     Dates: start: 201607
  2. AMLODIPINE                         /00972402/ [Suspect]
     Active Substance: AMLODIPINE BESYLATE
     Indication: HYPERTENSION
     Dosage: 2.5 MG, QD
     Route: 048
     Dates: start: 201607
  3. DIART [Suspect]
     Active Substance: AZOSEMIDE
     Indication: HYPERTENSION
     Dosage: 30 MG, QD
     Route: 048
     Dates: start: 201607
  4. LIXIANA OD TABLETS [Suspect]
     Active Substance: EDOXABAN TOSYLATE
     Indication: ATRIAL FIBRILLATION
     Dosage: 30 MG, QD
     Route: 048
     Dates: start: 201607, end: 20181016

REACTIONS (2)
  - Cerebral haemorrhage [Fatal]
  - Immune thrombocytopenic purpura [Fatal]

NARRATIVE: CASE EVENT DATE: 20181016
